FAERS Safety Report 7308645-6 (Version None)
Quarter: 2011Q1

REPORT INFORMATION
  Report Type: 
  Country: None (occurrence: None)
  Receive Date: 20110210
  Receipt Date: 20110203
  Transmission Date: 20110831
  Serious: Yes (Other)
  Sender: FDA-Public Use
  Company Number: 2010SP053384

PATIENT
  Age: 27 Year
  Sex: Female
  Weight: 76.4311 kg

DRUGS (1)
  1. IMPLANON [Suspect]
     Indication: PRODUCT USED FOR UNKNOWN INDICATION
     Dates: start: 20090227, end: 20100925

REACTIONS (3)
  - DYSFUNCTIONAL UTERINE BLEEDING [None]
  - SMEAR CERVIX ABNORMAL [None]
  - DYSMENORRHOEA [None]
